FAERS Safety Report 5328360-8 (Version None)
Quarter: 2007Q2

REPORT INFORMATION
  Report Type: 
  Country: None (occurrence: None)
  Receive Date: 20070514
  Receipt Date: 20070426
  Transmission Date: 20071010
  Serious: Yes (Death, Hospitalization)
  Sender: FDA-Public Use
  Company Number: 2007AL001697

PATIENT
  Age: 67 Year
  Sex: Female

DRUGS (1)
  1. ACYCLOVIR [Suspect]
     Indication: FACIAL PALSY
     Dosage: 200 MG; PO
     Route: 048
     Dates: start: 20051001

REACTIONS (8)
  - AFFECT LABILITY [None]
  - BRONCHOPNEUMONIA [None]
  - CEREBRAL ISCHAEMIA [None]
  - COORDINATION ABNORMAL [None]
  - GLASGOW COMA SCALE ABNORMAL [None]
  - NEUROTOXICITY [None]
  - SOMNOLENCE [None]
  - SUBDURAL HAEMATOMA [None]
